FAERS Safety Report 7949867-0 (Version None)
Quarter: 2011Q4

REPORT INFORMATION
  Report Type: 
  Country: None (occurrence: None)
  Receive Date: 20111130
  Receipt Date: 20111128
  Transmission Date: 20120403
  Serious: Yes (Disabling, Other)
  Sender: FDA-Public Use
  Company Number: US-BAYER-201040515NA

PATIENT
  Age: 55 Year
  Sex: Female

DRUGS (3)
  1. SYNTHROID [Concomitant]
     Indication: HYPOTHYROIDISM
  2. AVELOX [Suspect]
     Indication: SINUSITIS
  3. AVELOX [Suspect]
     Indication: ANTIBIOTIC PROPHYLAXIS
     Route: 048
     Dates: start: 20101020, end: 20101102

REACTIONS (8)
  - JOINT SWELLING [None]
  - NEUROPATHY PERIPHERAL [None]
  - MUSCLE SWELLING [None]
  - ARTHRALGIA [None]
  - MUSCULOSKELETAL PAIN [None]
  - TENDONITIS [None]
  - OEDEMA PERIPHERAL [None]
  - MYALGIA [None]
